FAERS Safety Report 4896085-9 (Version None)
Quarter: 2005Q4

REPORT INFORMATION
  Report Type: 
  Country: None (occurrence: None)
  Receive Date: 20051220
  Receipt Date: 20050907
  Transmission Date: 20060501
  Serious: Yes (Life-Threatening, Hospitalization)
  Sender: FDA-Public Use
  Company Number: US149753

PATIENT
  Age: 5 Year
  Sex: Male
  Weight: 21 kg

DRUGS (3)
  1. ENBREL [Suspect]
     Indication: JUVENILE ARTHRITIS
     Dosage: 15 MG, 1 IN 1, SC
     Route: 058
     Dates: start: 20050516, end: 20050516
  2. REMICADE [Suspect]
  3. PREDNISONE [Suspect]

REACTIONS (2)
  - PNEUMONIA [None]
  - SEPTIC SHOCK [None]
